FAERS Safety Report 13822536 (Version 2)
Quarter: 2019Q2

REPORT INFORMATION
  Report Type: Spontaneous
  Country: US (occurrence: US)
  Receive Date: 20170801
  Receipt Date: 20190412
  Transmission Date: 20190711
  Serious: Yes (Death, Hospitalization, Other)
  Sender: FDA-Public Use
  Company Number: US-NAPPMUNDI-GBR-2017-0047315

PATIENT
  Age: 2 Day
  Sex: Male
  Weight: 3.5 kg

DRUGS (2)
  1. MORPHINE SULFATE. [Suspect]
     Active Substance: MORPHINE SULFATE
     Indication: SEDATIVE THERAPY
  2. MORPHINE SULFATE. [Suspect]
     Active Substance: MORPHINE SULFATE
     Indication: PAIN
     Route: 065

REACTIONS (9)
  - Lymphadenopathy [Fatal]
  - Coagulopathy [Fatal]
  - Hepatosplenomegaly [Fatal]
  - Disease progression [Fatal]
  - Condition aggravated [Fatal]
  - General physical health deterioration [Unknown]
  - Newborn persistent pulmonary hypertension [Fatal]
  - Multiple organ dysfunction syndrome [Fatal]
  - Hypotension [Fatal]
